FAERS Safety Report 8395465-7 (Version None)
Quarter: 2012Q2

REPORT INFORMATION
  Report Type: 
  Country: None (occurrence: None)
  Receive Date: 20120525
  Receipt Date: 20120525
  Transmission Date: 20120825
  Serious: No
  Sender: FDA-Public Use
  Company Number: None

PATIENT
  Sex: Female

DRUGS (2)
  1. BYSTOLIC [Suspect]
     Indication: SYSTEMIC LUPUS ERYTHEMATOSUS
     Dosage: 20MG DAILY PO
     Route: 048
     Dates: start: 20120406
  2. BYSTOLIC [Suspect]
     Indication: CARDIAC FAILURE
     Dosage: 20MG DAILY PO
     Route: 048
     Dates: start: 20120406

REACTIONS (8)
  - ORAL MUCOSAL BLISTERING [None]
  - SKIN EXFOLIATION [None]
  - HYPERSENSITIVITY [None]
  - BLISTER [None]
  - DYSPHONIA [None]
  - CONFUSIONAL STATE [None]
  - NAUSEA [None]
  - INSOMNIA [None]
